FAERS Safety Report 23800553 (Version 1)
Quarter: 2024Q2

REPORT INFORMATION
  Report Type: Spontaneous
  Country: US (occurrence: None)
  Receive Date: 20240429
  Receipt Date: 20240429
  Transmission Date: 20240716
  Serious: Yes (Other)
  Sender: FDA-Public Use
  Company Number: None

PATIENT
  Age: 62 Year
  Sex: Female

DRUGS (2)
  1. STELARA [Suspect]
     Active Substance: USTEKINUMAB
     Indication: Colitis ulcerative
     Dosage: FREQUENCY : MONTHLY;?
     Route: 058
     Dates: start: 20220718
  2. STELARA [Suspect]
     Active Substance: USTEKINUMAB
     Indication: Disease complication

REACTIONS (1)
  - Dysarthria [None]

NARRATIVE: CASE EVENT DATE: 20240410
